FAERS Safety Report 4357346-5 (Version None)
Quarter: 2004Q2

REPORT INFORMATION
  Report Type: 
  Country: None (occurrence: None)
  Receive Date: 20040511
  Receipt Date: 20040511
  Transmission Date: 20050107
  Serious: Yes (Hospitalization)
  Sender: FDA-Public Use
  Company Number: None

PATIENT
  Age: 55 Year
  Sex: Female
  Weight: 68.4932 kg

DRUGS (13)
  1. ENOXAPARIN SODIUM [Suspect]
     Indication: PULMONARY EMBOLISM
     Dosage: 60 MG EVERY 12 H SUBCUTANEOUS
     Route: 058
     Dates: start: 20031217, end: 20031221
  2. ASPIRIN [Suspect]
     Indication: CORONARY ARTERY DISEASE
     Dosage: 325 MG DAILY ORAL
     Route: 048
     Dates: start: 20031217, end: 20031221
  3. AMITRIPTYLINE HCL [Concomitant]
  4. DULCOLAX [Concomitant]
  5. FLEXERIL [Concomitant]
  6. TIAZAC [Concomitant]
  7. IRON [Concomitant]
  8. NEURONTIN [Concomitant]
  9. ROBITUSSIN [Concomitant]
  10. LEVAQUIN [Concomitant]
  11. METHADONE HCL [Concomitant]
  12. LOPRESSOR [Concomitant]
  13. PROTONIX [Concomitant]

REACTIONS (3)
  - HYPOTENSION [None]
  - RETROPERITONEAL HAEMORRHAGE [None]
  - TACHYCARDIA [None]
